FAERS Safety Report 11982745 (Version 2)
Quarter: 2019Q2

REPORT INFORMATION
  Report Type: Spontaneous
  Country: US (occurrence: US)
  Receive Date: 20160201
  Receipt Date: 20190429
  Transmission Date: 20190711
  Serious: No
  Sender: FDA-Public Use
  Company Number: US-ELI_LILLY_AND_COMPANY-US201601003188

PATIENT
  Sex: Male

DRUGS (5)
  1. CIALIS [Suspect]
     Active Substance: TADALAFIL
     Indication: ERECTILE DYSFUNCTION
     Dosage: 5 MG, PRN
     Route: 065
  2. CIALIS [Suspect]
     Active Substance: TADALAFIL
     Dosage: 20 MG, PRN
  3. CIALIS [Suspect]
     Active Substance: TADALAFIL
     Dosage: 10 MG, PRN
     Route: 065
  4. CIALIS [Suspect]
     Active Substance: TADALAFIL
     Dosage: 5 MG, QD
  5. TESTOSTERONE. [Concomitant]
     Active Substance: TESTOSTERONE
     Indication: PRODUCT USED FOR UNKNOWN INDICATION
     Dosage: UNK, UNKNOWN
     Route: 065

REACTIONS (4)
  - Wrong technique in product usage process [Unknown]
  - Blood testosterone decreased [Unknown]
  - Drug ineffective [Unknown]
  - Spontaneous penile erection [Unknown]
